FAERS Safety Report 20065380 (Version 4)
Quarter: 2021Q4

REPORT INFORMATION
  Report Type: Report from Study
  Country: GT (occurrence: GT)
  Receive Date: 20211113
  Receipt Date: 20211227
  Transmission Date: 20220303
  Serious: Yes (Other)
  Sender: FDA-Public Use
  Company Number: GT-NOVARTISPH-NVSC2021GT258691

PATIENT
  Age: 82 Year
  Sex: Female
  Weight: 70.295 kg

DRUGS (9)
  1. HYDROCHLOROTHIAZIDE\VALSARTAN [Suspect]
     Active Substance: HYDROCHLOROTHIAZIDE\VALSARTAN
     Indication: Hypertension
     Dosage: 1 DOSAGE FORM, QD, APPROXIMATELY 10 YEARS AGO
     Route: 048
  2. LEVOTHYROXINE SODIUM [Concomitant]
     Active Substance: LEVOTHYROXINE SODIUM
     Indication: Thyroid disorder
     Dosage: 75 MCG, QD, (SINCE 15 YEARS APPROXIMATELY)
     Route: 048
  3. CALCIUM DOBESILATE [Concomitant]
     Active Substance: CALCIUM DOBESILATE
     Indication: Diabetic retinopathy
     Dosage: 1 X 500 MG, QD (SINCE 10 YEARS APPROXIMATELY)
     Route: 048
  4. EXPANSIA [Concomitant]
     Indication: Coagulopathy
     Dosage: 1 X 75 MG, QD (SINCE 3 YEARS AGO APPROXIMATELY)
     Route: 048
  5. ASPIRIN [Concomitant]
     Active Substance: ASPIRIN
     Indication: Product used for unknown indication
     Dosage: UNK, QD
     Route: 048
     Dates: start: 202012
  6. LANTUS [Concomitant]
     Active Substance: INSULIN GLARGINE
     Indication: Diabetes mellitus
     Dosage: UNK , QD (IN THE MORNING, SINCE 55 YEARS APPROXIMATELY)
     Route: 065
  7. APIDRA [Concomitant]
     Active Substance: INSULIN GLULISINE
     Indication: Diabetes mellitus
     Dosage: UNK, BEFORE LUNCH (SINCE 55 YEARS APPROXIMATELY)
     Route: 065
  8. GASTROFLUX [Concomitant]
     Indication: Product used for unknown indication
     Dosage: 1 UNK, QD (SINCE 3 YEARS APPROXIMATELY)
     Route: 048
  9. DISLEP [Concomitant]
     Indication: Blood cholesterol increased
     Dosage: UNK
     Route: 065

REACTIONS (12)
  - Cataract [Unknown]
  - Visual impairment [Unknown]
  - Infarction [Unknown]
  - Eye injury [Unknown]
  - Eye haemorrhage [Unknown]
  - Spinal disorder [Unknown]
  - Nerve injury [Unknown]
  - Acute myocardial infarction [Recovering/Resolving]
  - Cardiac failure [Recovering/Resolving]
  - Gait disturbance [Unknown]
  - Peripheral swelling [Unknown]
  - Epistaxis [Recovered/Resolved]

NARRATIVE: CASE EVENT DATE: 20201201
